FAERS Safety Report 5801754-X (Version None)
Quarter: 2008Q2

REPORT INFORMATION
  Report Type: 
  Country: None (occurrence: None)
  Receive Date: 20080626
  Receipt Date: 20080215
  Transmission Date: 20081010
  Serious: Yes (Other)
  Sender: FDA-Public Use
  Company Number: 547577

PATIENT
  Age: 66 Year
  Sex: Male

DRUGS (1)
  1. XELODA [Suspect]
     Dosage: 1000 MG 2 PER DAY

REACTIONS (5)
  - ERYTHEMA [None]
  - MALIGNANT NEOPLASM PROGRESSION [None]
  - NAIL DISCOLOURATION [None]
  - NEOPLASM [None]
  - SKIN EXFOLIATION [None]
